FAERS Safety Report 25028475 (Version 1)
Quarter: 2025Q1

REPORT INFORMATION
  Report Type: Spontaneous
  Country: AU (occurrence: AU)
  Receive Date: 20250302
  Receipt Date: 20250302
  Transmission Date: 20250409
  Serious: Yes (Life-Threatening, Hospitalization)
  Sender: CSL BEHRING
  Company Number: AU-BEH-2025197106

PATIENT
  Age: 32 Year
  Sex: Female

DRUGS (1)
  1. ALBUMIN HUMAN [Suspect]
     Active Substance: ALBUMIN HUMAN
     Indication: Resuscitation
     Route: 042
     Dates: start: 20250219, end: 20250219

REACTIONS (3)
  - Anaphylactic reaction [Recovered/Resolved]
  - Blood pressure decreased [Recovered/Resolved]
  - Tachycardia [Recovered/Resolved]

NARRATIVE: CASE EVENT DATE: 20250219
